FAERS Safety Report 6488883-5 (Version None)
Quarter: 2009Q4

REPORT INFORMATION
  Report Type: 
  Country: None (occurrence: None)
  Receive Date: 20091210
  Receipt Date: 20091130
  Transmission Date: 20100525
  Serious: Yes (Other)
  Sender: FDA-Public Use
  Company Number: JP-ABBOTT-09P-087-0596869-00

PATIENT
  Sex: Female
  Weight: 50 kg

DRUGS (12)
  1. HUMIRA [Suspect]
     Indication: PSORIASIS
     Route: 058
     Dates: start: 20060811, end: 20070209
  2. HUMIRA [Suspect]
     Route: 058
     Dates: start: 20070223, end: 20090723
  3. EURAX H [Concomitant]
     Indication: PSORIASIS
     Dates: start: 20060210, end: 20090906
  4. HIRUDOID [Concomitant]
     Indication: PSORIASIS
     Dates: start: 20060224, end: 20090906
  5. LIDOMEX [Concomitant]
     Indication: PSORIASIS
     Dates: start: 20060101, end: 20090906
  6. FLUTIDE [Concomitant]
     Indication: ASTHMA
     Route: 055
     Dates: start: 20061020
  7. LOCOID [Concomitant]
     Indication: PSORIASIS
     Dates: start: 20090723
  8. MEPTIN AIR [Concomitant]
     Indication: ASTHMA
     Route: 055
     Dates: start: 20030201
  9. MEPTIN AIR [Concomitant]
  10. HOKUNALIN TAPE [Concomitant]
     Indication: ASTHMA
     Dates: start: 20050822
  11. HOKUNALIN TAPE [Concomitant]
  12. ALESION [Concomitant]
     Indication: PSORIASIS
     Route: 048
     Dates: start: 20081205, end: 20090906

REACTIONS (1)
  - CERVIX CARCINOMA STAGE 0 [None]
